FAERS Safety Report 6678786-5 (Version None)
Quarter: 2010Q2

REPORT INFORMATION
  Report Type: 
  Country: None (occurrence: None)
  Receive Date: 20100408
  Receipt Date: 20100324
  Transmission Date: 20101027
  Serious: Yes (Hospitalization)
  Sender: FDA-Public Use
  Company Number: 2010001049

PATIENT
  Age: 50 Year
  Sex: Female

DRUGS (4)
  1. ERLOTINIB HYDROCHLORIDE [Suspect]
     Indication: NON-SMALL CELL LUNG CANCER
     Dosage: ORAL
     Route: 048
     Dates: start: 20091204
  2. GEMCITABINE [Suspect]
     Indication: NON-SMALL CELL LUNG CANCER
     Dosage: (1475 MG), INTRAVENOUS
     Route: 042
     Dates: start: 20091113
  3. FERROUS SULFATE TAB [Concomitant]
  4. CARBOPLATIN [Suspect]
     Indication: NON-SMALL CELL LUNG CANCER
     Dosage: 428 MG INTRAVENOUS
     Route: 042
     Dates: start: 20091113

REACTIONS (3)
  - ANAEMIA [None]
  - BLOOD CREATININE INCREASED [None]
  - NEUTROPENIA [None]
